FAERS Safety Report 22235339 (Version 1)
Quarter: 2023Q2

REPORT INFORMATION
  Report Type: Other
  Country: CH (occurrence: CH)
  Receive Date: 20230420
  Receipt Date: 20230420
  Transmission Date: 20230721
  Serious: Yes (Death, Other)
  Sender: FDA-Public Use
  Company Number: CH-BoehringerIngelheim-2023-BI-231307

PATIENT
  Age: 75 Year
  Sex: Female

DRUGS (3)
  1. ALTEPLASE [Suspect]
     Active Substance: ALTEPLASE
     Indication: Pulmonary embolism
     Dosage: INTRAVENOUS BOLUS OF (80 UNITS/KG)
     Route: 042
  2. ALTEPLASE [Suspect]
     Active Substance: ALTEPLASE
     Dosage: FOLLOWING BY A CONTINUED INFUSION OF 15-20 UNITS/KG/HOURS
     Route: 042
  3. HEPARIN [Concomitant]
     Active Substance: HEPARIN SODIUM
     Indication: Product used for unknown indication

REACTIONS (3)
  - Cerebral haemorrhage [Fatal]
  - Disease complication [Fatal]
  - Anticoagulation drug level above therapeutic [Unknown]
